FAERS Safety Report 18330016 (Version 2)
Quarter: 2020Q4

REPORT INFORMATION
  Report Type: Report from Study
  Country: US (occurrence: US)
  Receive Date: 20200930
  Receipt Date: 20201215
  Transmission Date: 20210113
  Serious: Yes (Other)
  Sender: FDA-Public Use
  Company Number: US-PFIZER INC-2020373832

PATIENT

DRUGS (1)
  1. MEPERIDINE HCL [Suspect]
     Active Substance: MEPERIDINE HYDROCHLORIDE
     Dosage: UNK (LESS THAN1200 MG/DAY X 3 DAYS)

REACTIONS (3)
  - Seizure [Recovered/Resolved]
  - Delirium [Recovered/Resolved]
  - Neurotoxicity [Recovered/Resolved]
